FAERS Safety Report 25111003 (Version 2)
Quarter: 2025Q1

REPORT INFORMATION
  Report Type: Report from Study
  Country: JP (occurrence: JP)
  Receive Date: 20250324
  Receipt Date: 20250327
  Transmission Date: 20250408
  Serious: Yes (Hospitalization)
  Sender: GILEAD
  Company Number: JP-GILEAD-2020-0454418

PATIENT
  Age: 31 Year
  Sex: Male

DRUGS (10)
  1. EMTRICITABINE\TENOFOVIR [Suspect]
     Active Substance: EMTRICITABINE\TENOFOVIR
     Indication: HIV infection
     Dosage: 1 DOSAGE FORM, QD
     Route: 048
     Dates: start: 20190216
  2. TIVICAY [Suspect]
     Active Substance: DOLUTEGRAVIR SODIUM
     Indication: HIV infection
     Route: 065
     Dates: start: 20190216
  3. LITHIUM CARBONATE [Suspect]
     Active Substance: LITHIUM CARBONATE
     Indication: Depression
     Route: 048
     Dates: start: 20231117
  4. LITHIUM CARBONATE [Suspect]
     Active Substance: LITHIUM CARBONATE
     Route: 048
  5. OLANZAPINE [Suspect]
     Active Substance: OLANZAPINE
     Indication: Depression
     Route: 048
  6. OLANZAPINE [Suspect]
     Active Substance: OLANZAPINE
     Route: 048
  7. FLUNITRAZEPAM [Suspect]
     Active Substance: FLUNITRAZEPAM
     Indication: Depression
     Route: 048
     Dates: start: 20231117
  8. FLUNITRAZEPAM [Suspect]
     Active Substance: FLUNITRAZEPAM
     Route: 048
  9. ETIZOLAM [Suspect]
     Active Substance: ETIZOLAM
     Indication: Depression
     Route: 048
     Dates: start: 20240204
  10. ETIZOLAM [Suspect]
     Active Substance: ETIZOLAM
     Route: 048

REACTIONS (7)
  - Depression [Not Recovered/Not Resolved]
  - Adjustment disorder [Recovered/Resolved]
  - Rhinitis [Recovering/Resolving]
  - Insomnia [Unknown]
  - Gynaecomastia [Not Recovered/Not Resolved]
  - Blood HIV RNA increased [Recovered/Resolved]
  - Treatment noncompliance [Recovered/Resolved]

NARRATIVE: CASE EVENT DATE: 20190423
